FAERS Safety Report 20491791 (Version 2)
Quarter: 2022Q1

REPORT INFORMATION
  Report Type: Spontaneous
  Country: None (occurrence: US)
  Receive Date: 20220218
  Receipt Date: 20220309
  Transmission Date: 20220423
  Serious: Yes (Other)
  Sender: FDA-Public Use
  Company Number: US-International Medication Systems, Limited-2126023

PATIENT
  Age: 56 Year
  Sex: Male

DRUGS (3)
  1. LIDOCAINE HYDROCHLORIDE [Suspect]
     Active Substance: LIDOCAINE HYDROCHLORIDE
     Indication: Induction of anaesthesia
     Route: 061
     Dates: start: 20220121, end: 20220121
  2. DEVICE [Suspect]
     Active Substance: DEVICE
  3. DEVICE [Suspect]
     Active Substance: DEVICE

REACTIONS (2)
  - Foreign body in respiratory tract [Recovered/Resolved]
  - Removal of foreign body [Recovered/Resolved]

NARRATIVE: CASE EVENT DATE: 20220121
